FAERS Safety Report 6686602-0 (Version None)
Quarter: 2010Q2

REPORT INFORMATION
  Report Type: 
  Country: None (occurrence: None)
  Receive Date: 20100419
  Receipt Date: 20100406
  Transmission Date: 20101027
  Serious: Yes (Other)
  Sender: FDA-Public Use
  Company Number: US-ROCHE-696421

PATIENT

DRUGS (1)
  1. OSELTAMIVIR PHOSPHATE [Suspect]

REACTIONS (2)
  - DEATH NEONATAL [None]
  - PREMATURE LABOUR [None]
